FAERS Safety Report 9623326 (Version 2)
Quarter: 2013Q4

REPORT INFORMATION
  Report Type: Spontaneous
  Country: US (occurrence: US)
  Receive Date: 20131015
  Receipt Date: 20131015
  Transmission Date: 20140711
  Serious: Yes (Hospitalization)
  Sender: FDA-Public Use
  Company Number: US-DENDREON CORPORATION-2013PROUSA03041

PATIENT
  Age: 66 Year
  Sex: Male
  Weight: 107.48 kg

DRUGS (12)
  1. PROVENGE [Suspect]
     Indication: PROSTATE CANCER METASTATIC
     Dosage: 250 ML, SINGLE
     Route: 042
     Dates: start: 20130718, end: 20130718
  2. PROVENGE [Suspect]
     Dosage: 250 ML, SINGLE
     Route: 042
     Dates: start: 20130815, end: 20130815
  3. PROVENGE [Suspect]
     Dosage: 250 ML, SINGLE
     Route: 042
     Dates: start: 20130830, end: 20130830
  4. ZEBETA [Concomitant]
     Indication: HYPERTENSION
     Dosage: 1 TABLETS, QD
     Route: 048
  5. CALCIUM CARBONATE [Concomitant]
     Dosage: 600 MG, BID
     Route: 048
  6. CATAPRESS [Concomitant]
     Dosage: 0.1 MG, TID
     Route: 048
  7. LASIX [Concomitant]
     Dosage: 40 MG, BID
     Route: 048
  8. HYDROCORTISONE [Concomitant]
     Indication: PROSTATE CANCER
     Dosage: 2 TABLETS IN AM; 1 TABLET IN PM
  9. LOSARTAN [Concomitant]
     Dosage: 100 MG, QD
     Route: 048
  10. KETOCONAZOLE [Concomitant]
     Indication: PROSTATE CANCER METASTATIC
     Dosage: 200 MG, TID
     Route: 048
  11. KLOR-CON [Concomitant]
     Dosage: 20 MEQ, EVERY 2 DAYS
     Route: 048
  12. VITAMIN B COMPLEX [Concomitant]
     Dosage: 1 TABLETS, QD
     Route: 048

REACTIONS (9)
  - Loss of consciousness [Recovered/Resolved]
  - Visual impairment [Recovered/Resolved]
  - Nausea [Recovered/Resolved]
  - Cyanosis [Recovered/Resolved]
  - Mobility decreased [Recovered/Resolved]
  - Pyrexia [Recovered/Resolved]
  - Dental caries [Recovered/Resolved]
  - Orthostatic hypotension [Recovered/Resolved]
  - Headache [Recovered/Resolved]
